FAERS Safety Report 20975203 (Version 1)
Quarter: 2022Q2

REPORT INFORMATION
  Report Type: Spontaneous
  Country: IT (occurrence: IT)
  Receive Date: 20220617
  Receipt Date: 20220617
  Transmission Date: 20220721
  Serious: Yes (Hospitalization)
  Sender: FDA-Public Use
  Company Number: None

PATIENT
  Age: 65 Year
  Sex: Female
  Weight: 70 kg

DRUGS (2)
  1. OXALIPLATIN [Suspect]
     Active Substance: OXALIPLATIN
     Indication: Rectal cancer
     Dosage: STRENGTH : 5 MG/ML , UNIT DOSE : 140 MG , FREQUENCY TIME : 1 CYCLICAL  , DURATION : 155 DAYS
     Route: 042
     Dates: start: 20211221, end: 20220525
  2. CAPECITABINE [Concomitant]
     Active Substance: CAPECITABINE
     Dosage: UNIT DOSE : 2000 MG , FREQUENCY TIME : 1 DAY
     Route: 048

REACTIONS (5)
  - Inflammation [Not Recovered/Not Resolved]
  - Pyrexia [Not Recovered/Not Resolved]
  - Anaemia [Not Recovered/Not Resolved]
  - Vomiting [Not Recovered/Not Resolved]
  - Diarrhoea [Not Recovered/Not Resolved]

NARRATIVE: CASE EVENT DATE: 20220525
